FAERS Safety Report 6689153-2 (Version None)
Quarter: 2010Q2

REPORT INFORMATION
  Report Type: 
  Country: None (occurrence: None)
  Receive Date: 20100415
  Receipt Date: 20100401
  Transmission Date: 20101027
  Serious: Yes (Other)
  Sender: FDA-Public Use
  Company Number: 2010SP019431

PATIENT
  Age: 78 Year
  Sex: Female

DRUGS (1)
  1. NANDROLONE DECANOATE [Suspect]
     Indication: OSTEOPOROSIS
     Dosage: 50 MG; QM;
     Dates: start: 19800101, end: 20100101

REACTIONS (3)
  - HAEMOGLOBIN INCREASED [None]
  - HIGH DENSITY LIPOPROTEIN INCREASED [None]
  - SYNCOPE [None]
